FAERS Safety Report 5197424-4 (Version None)
Quarter: 2007Q1

REPORT INFORMATION
  Report Type: 
  Country: None (occurrence: None)
  Receive Date: 20070103
  Receipt Date: 20061229
  Transmission Date: 20070707
  Serious: Yes (Hospitalization)
  Sender: FDA-Public Use
  Company Number: IT-ABBOTT-06P-083-0347249-00

PATIENT
  Sex: Female

DRUGS (2)
  1. KLACID [Suspect]
     Indication: ASTHMA
     Dates: start: 20061001, end: 20061006
  2. PREDNISONE TAB [Suspect]
     Indication: ASTHMA
     Dates: start: 20061001, end: 20061006

REACTIONS (2)
  - CONFUSIONAL STATE [None]
  - PSYCHOMOTOR HYPERACTIVITY [None]
